FAERS Safety Report 4368379-7 (Version None)
Quarter: 2004Q2

REPORT INFORMATION
  Report Type: 
  Country: None (occurrence: None)
  Receive Date: 20040602
  Receipt Date: 20030909
  Transmission Date: 20050107
  Serious: Yes (Other)
  Sender: FDA-Public Use
  Company Number: US-GLAXOSMITHKLINE-A0425167A

PATIENT

DRUGS (2)
  1. AVANDIA [Suspect]
     Indication: DIABETES MELLITUS
  2. ACTOS [Suspect]
     Indication: DIABETES MELLITUS

REACTIONS (9)
  - CARDIAC FAILURE CONGESTIVE [None]
  - FLUID RETENTION [None]
  - HYPERCHOLESTEROLAEMIA [None]
  - HYPERTENSION [None]
  - MACULAR OEDEMA [None]
  - PITTING OEDEMA [None]
  - RENAL FAILURE [None]
  - VISUAL ACUITY REDUCED [None]
  - WEIGHT INCREASED [None]
